FAERS Safety Report 11674816 (Version 1)
Quarter: 2015Q4

REPORT INFORMATION
  Report Type: Spontaneous
  Country: US (occurrence: US)
  Receive Date: 20151027
  Receipt Date: 20151027
  Transmission Date: 20160304
  Serious: No
  Sender: FDA-Public Use
  Company Number: US-ELI_LILLY_AND_COMPANY-US201008004929

PATIENT
  Age: 77 Year
  Sex: Female

DRUGS (13)
  1. VITAMIN D [Concomitant]
     Active Substance: CHOLECALCIFEROL
  2. CEPHALEXIN. [Concomitant]
     Active Substance: CEPHALEXIN
  3. ASPIRIN. [Concomitant]
     Active Substance: ASPIRIN
  4. OMEGA 3 FISH OIL [Concomitant]
     Active Substance: FISH OIL\OMEGA-3 FATTY ACIDS
  5. HYDROCODONE [Concomitant]
     Active Substance: HYDROCODONE
  6. ZOLPIDEM [Concomitant]
     Active Substance: ZOLPIDEM\ZOLPIDEM TARTRATE
  7. FORTEO [Suspect]
     Active Substance: TERIPARATIDE
     Indication: OSTEOPOROSIS
     Dosage: 20 UG, DAILY (1/D)
     Dates: start: 20100803, end: 20100814
  8. VITAMIN B12 [Concomitant]
     Active Substance: CYANOCOBALAMIN
  9. PRILOSEC [Concomitant]
     Active Substance: OMEPRAZOLE MAGNESIUM
  10. FOLIC ACID. [Concomitant]
     Active Substance: FOLIC ACID
  11. LIPITOR [Concomitant]
     Active Substance: ATORVASTATIN CALCIUM
  12. GRAPE SEED [Concomitant]
  13. CALCITONIN [Concomitant]
     Active Substance: CALCITONIN

REACTIONS (6)
  - Asthenia [Unknown]
  - Eye disorder [Unknown]
  - Gait disturbance [Unknown]
  - Visual impairment [Unknown]
  - Dizziness [Unknown]
  - Headache [Unknown]

NARRATIVE: CASE EVENT DATE: 20100814
